FAERS Safety Report 6158252-6 (Version None)
Quarter: 2009Q2

REPORT INFORMATION
  Report Type: 
  Country: None (occurrence: None)
  Receive Date: 20090417
  Receipt Date: 20070917
  Transmission Date: 20091009
  Serious: Yes (Hospitalization, Other)
  Sender: FDA-Public Use
  Company Number: US-ASTRAZENECA-2007UW09826

PATIENT
  Age: 18002 Day
  Sex: Female
  Weight: 87.5 kg

DRUGS (18)
  1. SEROQUEL [Suspect]
     Indication: BIPOLAR DISORDER
     Dosage: 25 MG TO 100 MG
     Route: 048
     Dates: start: 20020401, end: 20040101
  2. SEROQUEL [Suspect]
     Route: 048
     Dates: start: 20051011
  3. ZYPREXA [Suspect]
     Indication: BIPOLAR DISORDER
     Dates: start: 20040401
  4. LIPITOR [Concomitant]
  5. PROTONIX [Concomitant]
  6. ATENOLOL [Concomitant]
  7. AMBIEN [Concomitant]
  8. CIPROFLOXACIN HCL [Concomitant]
  9. FOLIC ACID [Concomitant]
  10. SYMBYAX [Concomitant]
  11. PAXIL [Concomitant]
  12. DEPAKOTE [Concomitant]
  13. NEURONTIN [Concomitant]
  14. HYDROCHLOROTHIAZIDE [Concomitant]
  15. PREVACID [Concomitant]
  16. VICODIN [Concomitant]
  17. FLAGYL [Concomitant]
  18. SANCTURA [Concomitant]

REACTIONS (18)
  - ABDOMINAL PAIN UPPER [None]
  - BLADDER SPASM [None]
  - CHOLANGITIS [None]
  - CHOLECYSTITIS CHRONIC [None]
  - CHOLELITHIASIS [None]
  - DIARRHOEA [None]
  - DYSPEPSIA [None]
  - DYSPNOEA [None]
  - ELECTROCARDIOGRAM T WAVE ABNORMAL [None]
  - HYPOKALAEMIA [None]
  - NAUSEA [None]
  - NOCTURIA [None]
  - PANCREATITIS [None]
  - PANCREATITIS ACUTE [None]
  - REFLUX OESOPHAGITIS [None]
  - SKIN LACERATION [None]
  - URINARY INCONTINENCE [None]
  - VOMITING [None]
